FAERS Safety Report 4879641-3 (Version None)
Quarter: 2006Q1

REPORT INFORMATION
  Report Type: 
  Country: None (occurrence: None)
  Receive Date: 20060111
  Receipt Date: 20051222
  Transmission Date: 20060701
  Serious: Yes (Other)
  Sender: FDA-Public Use
  Company Number: GB200512003683

PATIENT
  Age: 9 Year
  Sex: Male
  Weight: 40 kg

DRUGS (2)
  1. STRATTERA [Suspect]
     Dosage: 54 MG, ORAL
     Route: 048
     Dates: start: 20051010, end: 20051120
  2. METHYLPHENIDATE HCL [Concomitant]

REACTIONS (6)
  - ABNORMAL BEHAVIOUR [None]
  - AKATHISIA [None]
  - DISINHIBITION [None]
  - HYPOMANIA [None]
  - MOOD SWINGS [None]
  - SUICIDAL IDEATION [None]
